FAERS Safety Report 9983430 (Version 3)
Quarter: 2014Q2

REPORT INFORMATION
  Report Type: Spontaneous
  Country: US (occurrence: US)
  Receive Date: 20140307
  Receipt Date: 20140603
  Transmission Date: 20141212
  Serious: Yes (Hospitalization)
  Sender: FDA-Public Use
  Company Number: US-BAYER-2014-032309

PATIENT
  Age: 25 Year
  Sex: Female
  Weight: 58.96 kg

DRUGS (1)
  1. MIRENA [Suspect]
     Indication: CONTRACEPTION
     Dosage: 20 MCG/24HR, CONT
     Route: 015
     Dates: start: 200301, end: 200605

REACTIONS (9)
  - Uterine perforation [None]
  - Ectopic pregnancy with contraceptive device [None]
  - Menorrhagia [None]
  - Drug ineffective [None]
  - Depression [None]
  - Anxiety [None]
  - Injury [None]
  - Pain [None]
  - Emotional distress [Not Recovered/Not Resolved]
